FAERS Safety Report 7545877-6 (Version None)
Quarter: 2011Q2

REPORT INFORMATION
  Report Type: 
  Country: None (occurrence: None)
  Receive Date: 20110524
  Receipt Date: 20110222
  Transmission Date: 20111010
  Serious: No
  Sender: FDA-Public Use
  Company Number: 028041

PATIENT
  Sex: Male
  Weight: 80.7 kg

DRUGS (4)
  1. CIMZIA [Suspect]
     Indication: CROHN'S DISEASE
     Dosage: (400 MG 1X/MONTH)
     Dates: start: 20101007
  2. ZOLPIDEM [Concomitant]
  3. LEVAQUIN [Concomitant]
  4. CITALOPRAM HYDROBROMIDE [Concomitant]

REACTIONS (3)
  - COUGH [None]
  - PNEUMONIA [None]
  - RESPIRATORY TRACT CONGESTION [None]
